FAERS Safety Report 4790497-X (Version None)
Quarter: 2005Q4

REPORT INFORMATION
  Report Type: 
  Country: None (occurrence: None)
  Receive Date: 20051005
  Receipt Date: 20050923
  Transmission Date: 20060501
  Serious: Yes (Hospitalization, Other)
  Sender: FDA-Public Use
  Company Number: HQWYE223015JUL05

PATIENT
  Age: 54 Year
  Sex: Female

DRUGS (17)
  1. RAPAMUNE [Suspect]
     Indication: PROPHYLAXIS AGAINST TRANSPLANT REJECTION
     Dosage: 5 MG 1X PER 1 DAY, ORAL
     Route: 048
     Dates: start: 20050627
  2. PREDNISONE [Concomitant]
  3. CLONIDINE [Concomitant]
  4. AMLODIPINE BESYLATE [Concomitant]
  5. LABETALOL HYDROCHLORIDE [Concomitant]
  6. VALGANCICLOVIR (VALGANCICLOVIR) [Concomitant]
  7. GATIFLOXACIN [Concomitant]
  8. BUPRENORPHINE (BUPRENORPHINE) [Concomitant]
  9. ONDANSETRON (ONDANSETRON) [Concomitant]
  10. FERROUS SULFATE TAB [Concomitant]
  11. IBERT-FOLIC (FERROUS SULFATE/FOLIC ACID/VITAMINS NOS) [Concomitant]
  12. CLOTRIMAZOLE (CLOTRIMAZOLE) [Concomitant]
  13. SULFAMETHOXAZOLE W/TRIMETHOPRIM (SULFAMETHOXAZOLE W/TRIMETHROPRIM) [Concomitant]
  14. DOCUSATE (DOCUSATE) [Concomitant]
  15. CELLCEPT [Concomitant]
  16. PROTONIX [Concomitant]
  17. CRESTOR [Concomitant]

REACTIONS (6)
  - AORTIC ARTERIOSCLEROSIS [None]
  - ARTERIAL STENOSIS [None]
  - POST PROCEDURAL COMPLICATION [None]
  - POST PROCEDURAL HAEMATOMA [None]
  - RENAL TUBULAR NECROSIS [None]
  - URETERIC OBSTRUCTION [None]
